FAERS Safety Report 9540395 (Version 1)
Quarter: 2013Q3

REPORT INFORMATION
  Report Type: Spontaneous
  Country: US (occurrence: US)
  Receive Date: 20130920
  Receipt Date: 20130920
  Transmission Date: 20140515
  Serious: Yes (Death, Other)
  Sender: FDA-Public Use
  Company Number: US-BAXTER-2013BAX037009

PATIENT
  Age: 28 Year
  Sex: Male

DRUGS (2)
  1. OSMITROL INJECTION [Suspect]
     Indication: INTRACRANIAL PRESSURE INCREASED
  2. OSMITROL INJECTION [Suspect]
     Dosage: 50-100 GRAMS

REACTIONS (2)
  - Sepsis [Fatal]
  - Renal failure [Recovering/Resolving]
